FAERS Safety Report 7375937-4 (Version None)
Quarter: 2011Q1

REPORT INFORMATION
  Report Type: 
  Country: None (occurrence: None)
  Receive Date: 20110325
  Receipt Date: 20110302
  Transmission Date: 20110831
  Serious: No
  Sender: FDA-Public Use
  Company Number: US-B.I. PHARMACEUTICALS,INC./RIDGEFIELD-2011-BP-06383BP

PATIENT
  Sex: Female

DRUGS (6)
  1. PERCOCET [Concomitant]
     Indication: BACK DISORDER
     Route: 048
     Dates: start: 20010101
  2. ATENOLOL [Concomitant]
     Indication: HYPERTENSION
     Route: 048
  3. NEURONTIN [Concomitant]
     Indication: BACK DISORDER
     Route: 048
  4. MEDICATION NOT FURTHER SPECIFICED [Concomitant]
     Indication: BLOOD CHOLESTEROL INCREASED
  5. SPIRIVA [Suspect]
     Indication: CHRONIC OBSTRUCTIVE PULMONARY DISEASE
     Dosage: 18 MCG
     Route: 055
     Dates: start: 20110225
  6. PAIN PUMP WITH UNKNOWN MEDICATION [Concomitant]
     Indication: BACK DISORDER

REACTIONS (4)
  - PRURITUS GENERALISED [None]
  - SKIN DISORDER [None]
  - CONTUSION [None]
  - VISUAL IMPAIRMENT [None]
